FAERS Safety Report 7277308-8 (Version None)
Quarter: 2011Q1

REPORT INFORMATION
  Report Type: 
  Country: None (occurrence: None)
  Receive Date: 20110203
  Receipt Date: 20110203
  Transmission Date: 20110831
  Serious: Yes (Other)
  Sender: FDA-Public Use
  Company Number: None

PATIENT
  Sex: Male
  Weight: 104.5 kg

DRUGS (4)
  1. CARVEDILOL [Concomitant]
  2. PRADAXA [Suspect]
     Indication: ATRIAL FIBRILLATION
     Dates: start: 20110128, end: 20110131
  3. FLOMAX [Concomitant]
  4. ASPIRIN [Concomitant]

REACTIONS (1)
  - CHEST PAIN [None]
